FAERS Safety Report 5258936-8 (Version None)
Quarter: 2007Q1

REPORT INFORMATION
  Report Type: 
  Country: None (occurrence: None)
  Receive Date: 20061117
  Receipt Date: 20060817
  Transmission Date: 20070707
  Serious: Yes (Hospitalization)
  Sender: FDA-Public Use
  Company Number: US-JNJFOC-20060804590

PATIENT
  Age: 35 Year
  Sex: Male

DRUGS (1)
  1. LEVAQUIN [Suspect]
     Indication: DRUG USE FOR UNKNOWN INDICATION
     Dosage: 500 MG, IN 1 DAY
     Dates: start: 20060811

REACTIONS (2)
  - MULTI-ORGAN FAILURE [None]
  - URINARY RETENTION [None]
